FAERS Safety Report 4465401-4 (Version None)
Quarter: 2004Q4

REPORT INFORMATION
  Report Type: 
  Country: None (occurrence: None)
  Receive Date: 20041004
  Receipt Date: 20031003
  Transmission Date: 20050328
  Serious: Yes (Hospitalization)
  Sender: FDA-Public Use
  Company Number: FRPFM-C-20030341

PATIENT
  Age: 63 Year
  Sex: Male

DRUGS (7)
  1. NAVELBINE [Suspect]
     Indication: NON-SMALL CELL LUNG CANCER
     Dosage: 80MGM2 CYCLIC
     Route: 048
     Dates: start: 20030327, end: 20030403
  2. CISPLATIN [Suspect]
     Indication: NON-SMALL CELL LUNG CANCER
     Dosage: 316MG CUMULATIVE DOSE
     Route: 042
     Dates: start: 20030327, end: 20030327
  3. FERROUS FUMARATE [Concomitant]
  4. FOLIC ACID [Concomitant]
  5. ZECLAR [Concomitant]
  6. CLAMOXYL [Concomitant]
  7. PLAVIX [Concomitant]

REACTIONS (3)
  - DUODENAL ULCER [None]
  - GENERAL PHYSICAL HEALTH DETERIORATION [None]
  - WEIGHT DECREASED [None]
